FAERS Safety Report 14296797 (Version 1)
Quarter: 2017Q4

REPORT INFORMATION
  Report Type: Spontaneous
  Country: US (occurrence: US)
  Receive Date: 20171218
  Receipt Date: 20171218
  Transmission Date: 20180321
  Serious: Yes (Other)
  Sender: FDA-Public Use
  Company Number: US-ACORDA-ACO_134752_2017

PATIENT
  Age: 68 Year
  Sex: Female
  Weight: 77.1 kg

DRUGS (35)
  1. AMPYRA [Suspect]
     Active Substance: DALFAMPRIDINE
     Dosage: 10 MG, Q 12 HRS
     Route: 048
     Dates: start: 20170324
  2. ALBUTEROL. [Concomitant]
     Active Substance: ALBUTEROL
     Indication: WHEEZING
     Dosage: TAKE 2 PUFFS BY INHALATION EVERY 4 HOURS
     Route: 048
  3. FOLIC ACID. [Concomitant]
     Active Substance: FOLIC ACID
     Indication: PRODUCT USED FOR UNKNOWN INDICATION
     Dosage: 1 MG, QD
     Route: 048
  4. LIDODERM [Concomitant]
     Active Substance: LIDOCAINE
     Indication: PRODUCT USED FOR UNKNOWN INDICATION
     Dosage: 1 DF, QD
     Route: 062
  5. ALENDRONATE [Concomitant]
     Active Substance: ALENDRONATE SODIUM
     Indication: PRODUCT USED FOR UNKNOWN INDICATION
     Dosage: 70 MG, EVERY 7 DAYS
     Route: 048
  6. FERROUS SULFATE. [Concomitant]
     Active Substance: FERROUS SULFATE
     Indication: PRODUCT USED FOR UNKNOWN INDICATION
     Dosage: 325 MG, QD
     Route: 048
  7. OMEPRAZOLE. [Concomitant]
     Active Substance: OMEPRAZOLE
     Indication: PRODUCT USED FOR UNKNOWN INDICATION
     Dosage: 20 MG, BID
     Route: 048
  8. LYRICA [Concomitant]
     Active Substance: PREGABALIN
     Dosage: 100 MG, BID
     Route: 048
  9. ARICEPT [Concomitant]
     Active Substance: DONEPEZIL HYDROCHLORIDE
     Indication: PRODUCT USED FOR UNKNOWN INDICATION
     Dosage: 10 MG, HS
     Route: 048
  10. RITALIN [Concomitant]
     Active Substance: METHYLPHENIDATE HYDROCHLORIDE
     Indication: PRODUCT USED FOR UNKNOWN INDICATION
     Dosage: 20 MG, BID
     Route: 048
  11. PREGABALIN. [Concomitant]
     Active Substance: PREGABALIN
     Indication: PRODUCT USED FOR UNKNOWN INDICATION
     Dosage: 100 MG, UNK
     Route: 065
  12. CYANOCOBALAMIN. [Concomitant]
     Active Substance: CYANOCOBALAMIN
     Indication: PRODUCT USED FOR UNKNOWN INDICATION
     Dosage: 1000 MCG, QD
     Route: 048
  13. PROBIOTIC [Concomitant]
     Active Substance: PROBIOTICS NOS
     Indication: PRODUCT USED FOR UNKNOWN INDICATION
     Dosage: 1 DF, QAM
     Route: 048
  14. BACLOFEN. [Concomitant]
     Active Substance: BACLOFEN
     Indication: PRODUCT USED FOR UNKNOWN INDICATION
     Dosage: 10 MG, TWICE DAILY AT 7AM AND 3 PM
     Route: 048
  15. BACLOFEN. [Concomitant]
     Active Substance: BACLOFEN
     Dosage: 20 MG, HS (TAKE ALONG WITH BACLOFEN 10MG)
     Route: 048
  16. HYDROCODONE BITARTRATE AND ACETAMINOPHEN [Concomitant]
     Active Substance: ACETAMINOPHEN\HYDROCODONE BITARTRATE
     Indication: PAIN
     Dosage: 5/325 MG EVERY 8 HOURS
     Route: 048
  17. METHENAMINE [Concomitant]
     Active Substance: METHENAMINE
     Indication: PRODUCT USED FOR UNKNOWN INDICATION
     Dosage: 0.5 G, QID
     Route: 048
  18. MYCOPHENOLATE [Concomitant]
     Active Substance: MYCOPHENOLIC ACID
     Indication: PRODUCT USED FOR UNKNOWN INDICATION
     Dosage: 2 TABLETS 500 MG IN THE MORNING AND 1 TAB AT NIGHT
     Route: 048
  19. ALPRAZOLAM. [Concomitant]
     Active Substance: ALPRAZOLAM
     Indication: PRODUCT USED FOR UNKNOWN INDICATION
     Dosage: 0.25 MG, UNK
     Route: 065
  20. PSYLLIUM [Concomitant]
     Active Substance: PLANTAGO SEED
     Indication: PRODUCT USED FOR UNKNOWN INDICATION
     Dosage: 2 DF, BID
     Route: 048
  21. SENOKOT-S [Concomitant]
     Active Substance: DOCUSATE SODIUM\SENNOSIDES
     Indication: PRODUCT USED FOR UNKNOWN INDICATION
     Dosage: 2 DF, HS
     Route: 048
  22. AMPYRA [Suspect]
     Active Substance: DALFAMPRIDINE
     Indication: GAIT DISTURBANCE
     Dosage: 10 MG, Q 12 HRS
     Route: 048
     Dates: start: 2013, end: 20170215
  23. TRILEPTAL [Concomitant]
     Active Substance: OXCARBAZEPINE
     Indication: SEIZURE
     Dosage: 150 MG, TAKE 1/2 TABLET EVERY EVENING
     Route: 048
  24. DILANTIN [Concomitant]
     Active Substance: PHENYTOIN
     Indication: SEIZURE
     Dosage: 100 MG, TAKE 2 CAPSULES NIGHTLY
     Route: 048
  25. CALCIUM WITH VITAMIN D [Concomitant]
     Active Substance: CALCIUM\VITAMIN D
     Indication: PRODUCT USED FOR UNKNOWN INDICATION
     Dosage: 1 DF, BID
     Route: 048
  26. COLACE [Concomitant]
     Active Substance: DOCUSATE SODIUM
     Indication: PRODUCT USED FOR UNKNOWN INDICATION
     Dosage: 100 MG, QAM
     Route: 048
  27. CYMBALTA [Concomitant]
     Active Substance: DULOXETINE HYDROCHLORIDE
     Dosage: 60 MG, QD WITH 30MG CAP
     Route: 048
  28. FUROSEMIDE. [Concomitant]
     Active Substance: FUROSEMIDE
     Indication: PRODUCT USED FOR UNKNOWN INDICATION
     Dosage: 40 MG, TAKE 2 TABLETS DAILY
     Route: 048
  29. LYRICA [Concomitant]
     Active Substance: PREGABALIN
     Indication: PRODUCT USED FOR UNKNOWN INDICATION
     Dosage: 50 MG AT NOON AND 50MG AT NIGHT
     Route: 048
  30. VITAMIN C [Concomitant]
     Active Substance: ASCORBIC ACID
     Indication: PRODUCT USED FOR UNKNOWN INDICATION
     Dosage: 1000 MG, QD
     Route: 048
  31. CYCLOBENZAPRINE. [Concomitant]
     Active Substance: CYCLOBENZAPRINE
     Indication: PRODUCT USED FOR UNKNOWN INDICATION
     Dosage: 5 MG, BID
     Route: 048
  32. CYMBALTA [Concomitant]
     Active Substance: DULOXETINE HYDROCHLORIDE
     Indication: PRODUCT USED FOR UNKNOWN INDICATION
     Dosage: 30 MG, EVERY EVENING WITH 60MG CAPSULE
     Route: 048
  33. VITAMIN D3 [Concomitant]
     Active Substance: CHOLECALCIFEROL
     Indication: PRODUCT USED FOR UNKNOWN INDICATION
     Dosage: 2000 IU, QD
     Route: 048
  34. CRANBERRY. [Concomitant]
     Active Substance: CRANBERRY
     Indication: PRODUCT USED FOR UNKNOWN INDICATION
     Dosage: 2 DF (500MG) , TID
     Route: 048
  35. LORAZEPAM. [Concomitant]
     Active Substance: LORAZEPAM
     Indication: ANXIETY
     Dosage: 0.5 MG, Q 6 HRS
     Route: 048

REACTIONS (29)
  - Skin cancer [Unknown]
  - Pulmonary fibrosis [Unknown]
  - Therapy cessation [Recovered/Resolved]
  - Complication associated with device [Unknown]
  - Acute respiratory failure [Unknown]
  - Cryptogenic cirrhosis [Unknown]
  - Traumatic ulcer [Unknown]
  - Pyrexia [Unknown]
  - Therapeutic response unexpected [Unknown]
  - Pulmonary hypertension [Unknown]
  - Deep vein thrombosis [Unknown]
  - Anaemia [Unknown]
  - Dyspnoea [Unknown]
  - Gallbladder polyp [Unknown]
  - Muscular weakness [Not Recovered/Not Resolved]
  - Contraindicated product administered [Unknown]
  - Fracture [Unknown]
  - Gait inability [Not Recovered/Not Resolved]
  - Lymphoedema [Unknown]
  - Immunodeficiency [Unknown]
  - Asthenia [Unknown]
  - Joint prosthesis user [Unknown]
  - Pneumonia [Unknown]
  - Wound [Unknown]
  - Rhinitis allergic [Unknown]
  - Insomnia [Unknown]
  - Polyarthritis [Unknown]
  - Procedural hypotension [Unknown]
  - Cellulitis [Unknown]

NARRATIVE: CASE EVENT DATE: 20130521
